FAERS Safety Report 7518962-2 (Version None)
Quarter: 2011Q2

REPORT INFORMATION
  Report Type: 
  Country: None (occurrence: None)
  Receive Date: 20110602
  Receipt Date: 20110518
  Transmission Date: 20111010
  Serious: Yes (Hospitalization)
  Sender: FDA-Public Use
  Company Number: US-JNJFOC-20110509067

PATIENT
  Sex: Male

DRUGS (15)
  1. DOXYCYCLINE [Concomitant]
  2. REMICADE [Suspect]
     Indication: CROHN'S DISEASE
     Route: 042
  3. VIOKASE 16 [Concomitant]
  4. ZYRTEC [Concomitant]
     Indication: ASTHMA
  5. ALBUTEROL SULFATE AUTOHALER [Concomitant]
     Indication: ASTHMA
     Route: 055
  6. NOVOLOG [Concomitant]
     Indication: DIABETES MELLITUS
     Dosage: 7U AT BREAKFAST, 6 U AT LUNCH, 7U AT DINNER, PLUS INSULIN SLIDING SCALE
  7. ADVAIR DISKUS 100/50 [Concomitant]
     Indication: ASTHMA
  8. HUMIRA [Concomitant]
  9. LOPERAMIDE [Concomitant]
  10. LYRICA [Concomitant]
     Indication: NEUROPATHY PERIPHERAL
     Dosage: 25 MG BREAKAST, LUNCH, AND DINNER  50 MG AT BEDTIME
  11. ASPIRIN [Concomitant]
  12. PROTONIX [Concomitant]
  13. LANTUS [Concomitant]
     Indication: DIABETES MELLITUS
  14. LEXAPRO [Concomitant]
     Indication: ANXIETY
  15. CENTRUM SILVER [Concomitant]

REACTIONS (2)
  - CHOLANGITIS [None]
  - LIVER FUNCTION TEST ABNORMAL [None]
